FAERS Safety Report 6904281-1 (Version None)
Quarter: 2010Q3

REPORT INFORMATION
  Report Type: 
  Country: None (occurrence: None)
  Receive Date: 20100804
  Receipt Date: 20090415
  Transmission Date: 20110219
  Serious: Yes (Other)
  Sender: FDA-Public Use
  Company Number: US-PFIZER INC-2009184320

PATIENT
  Age: 47 Year
  Sex: Female
  Weight: 81.633 kg

DRUGS (4)
  1. LYRICA [Suspect]
     Indication: FIBROMYALGIA
     Dosage: 225 MG, 1X/DAY
     Dates: start: 20080101, end: 20090314
  2. XYREM [Suspect]
     Indication: FIBROMYALGIA
     Dates: end: 20090315
  3. ACYCLOVIR [Concomitant]
     Indication: EPSTEIN-BARR VIRUS INFECTION
     Dosage: UNK
  4. LEVOTHYROXINE SODIUM [Concomitant]
     Indication: FIBROMYALGIA
     Dosage: UNK

REACTIONS (5)
  - CHRONIC OBSTRUCTIVE PULMONARY DISEASE [None]
  - DYSPNOEA [None]
  - MUSCLE FATIGUE [None]
  - PEAK EXPIRATORY FLOW RATE DECREASED [None]
  - RESPIRATORY TRACT INFECTION [None]
